FAERS Safety Report 4776455-X (Version None)
Quarter: 2005Q3

REPORT INFORMATION
  Report Type: 
  Country: None (occurrence: None)
  Receive Date: 20050922
  Receipt Date: 20050915
  Transmission Date: 20060218
  Serious: Yes (Hospitalization, Other)
  Sender: FDA-Public Use
  Company Number: DE-MERCK-0509USA02354

PATIENT
  Age: 59 Year
  Sex: Male

DRUGS (3)
  1. HYDRODIURIL [Suspect]
     Indication: CARDIAC FAILURE CHRONIC
     Route: 048
  2. RAMIPRIL [Suspect]
     Indication: HYPERTENSION
     Route: 065
  3. SPIRONOLACTONE [Suspect]
     Route: 065

REACTIONS (4)
  - BENIGN PROSTATIC HYPERPLASIA [None]
  - HYPERKALAEMIA [None]
  - MENTAL DISORDER [None]
  - RENAL FAILURE ACUTE [None]
